FAERS Safety Report 19257127 (Version 2)
Quarter: 2021Q2

REPORT INFORMATION
  Report Type: Spontaneous
  Country: BE (occurrence: BE)
  Receive Date: 20210513
  Receipt Date: 20210607
  Transmission Date: 20210717
  Serious: Yes (Other)
  Sender: FDA-Public Use
  Company Number: BE-ABBVIE-21K-013-3904185-00

PATIENT
  Sex: Female
  Weight: 60.5 kg

DRUGS (12)
  1. INSULIN GLARGINE [Concomitant]
     Active Substance: INSULIN GLARGINE
     Indication: DIABETES MELLITUS
     Dosage: 06 UNITS
     Route: 058
     Dates: start: 20210305
  2. SEROXAT [PAROXETINE] [Concomitant]
     Indication: DEPRESSION
     Route: 048
     Dates: start: 20170824
  3. MONOPROST [Concomitant]
     Active Substance: LATANOPROST
     Indication: EYE INFECTION
     Dosage: ONE DROP
     Route: 061
     Dates: start: 20200206
  4. LOCOID [Concomitant]
     Active Substance: HYDROCORTISONE BUTYRATE
     Indication: VAGINAL INFECTION
     Dosage: ONE APPLICATION
     Route: 061
     Dates: start: 20210305
  5. MEDROL [Concomitant]
     Active Substance: METHYLPREDNISOLONE
     Indication: GRAFT VERSUS HOST DISEASE
     Route: 048
     Dates: start: 20210429
  6. STILNOCT [Concomitant]
     Active Substance: ZOLPIDEM TARTRATE
     Indication: INSOMNIA
     Route: 048
     Dates: start: 20170130
  7. INSUMAN RAPID [Concomitant]
     Active Substance: INSULIN HUMAN
     Indication: DIABETES MELLITUS
     Dosage: 18 UNITS
     Route: 058
     Dates: start: 20210305
  8. L?THYROXINE [LEVOTHYROXINE] [Concomitant]
     Active Substance: LEVOTHYROXINE
     Indication: THYROID DISORDER
     Route: 048
     Dates: start: 20190415
  9. MAGNECAPS [Concomitant]
     Indication: PRODUCT USED FOR UNKNOWN INDICATION
     Dosage: 01 CAPSULE
     Route: 048
  10. IMBRUVICA [Suspect]
     Active Substance: IBRUTINIB
     Indication: GRAFT VERSUS HOST DISEASE
     Route: 048
     Dates: start: 20200820, end: 20210401
  11. RETINOL ACETATE [Concomitant]
     Indication: EYE INFECTION
     Dosage: ONE DROP
     Route: 061
     Dates: start: 20200527
  12. SYSTANE (HYPROMELLOSE 2910 (4000 MPA.S)) [Concomitant]
     Active Substance: HYPROMELLOSE 2910 (4000 MPA.S)
     Indication: EYE INFECTION
     Dosage: ONE DROP
     Route: 061
     Dates: start: 20200527

REACTIONS (2)
  - Off label use [Unknown]
  - Drug ineffective for unapproved indication [Unknown]
